FAERS Safety Report 18577775 (Version 1)
Quarter: 2020Q4

REPORT INFORMATION
  Report Type: Spontaneous
  Country: ES (occurrence: ES)
  Receive Date: 20201204
  Receipt Date: 20201204
  Transmission Date: 20210114
  Serious: Yes (Other)
  Sender: FDA-Public Use
  Company Number: ES-SUN PHARMACEUTICAL INDUSTRIES LTD-2020RR-269818

PATIENT
  Age: 12 Year
  Sex: Female

DRUGS (11)
  1. INTERFERON ALFA-2B [Suspect]
     Active Substance: INTERFERON ALFA-2B
     Indication: RESPIRATORY PAPILLOMA
     Dosage: UNK
     Route: 065
  2. ERLOTINIB [Suspect]
     Active Substance: ERLOTINIB
     Indication: RESPIRATORY PAPILLOMA
     Dosage: 150 MILLIGRAM, DAILY
     Route: 065
  3. INTERFERON ALFA-2B [Suspect]
     Active Substance: INTERFERON ALFA-2B
     Indication: LARYNGEAL PAPILLOMA
     Dosage: 4,5 MILLION OF UNITS, ALTERNATE DAYS ()
     Route: 058
     Dates: start: 200112, end: 200201
  4. CIDOFOVIR. [Suspect]
     Active Substance: CIDOFOVIR
     Indication: RESPIRATORY PAPILLOMA
     Dosage: UNK ()
     Route: 065
  5. GARDASIL [Suspect]
     Active Substance: HUMAN PAPILLOMAVIRUS QUADRIVALENT (TYPES 6, 11, 16, AND 18) VACCINE, RECOMBINANT
     Indication: LARYNGEAL PAPILLOMA
     Dosage: UNK
     Route: 065
  6. GARDASIL [Suspect]
     Active Substance: HUMAN PAPILLOMAVIRUS QUADRIVALENT (TYPES 6, 11, 16, AND 18) VACCINE, RECOMBINANT
     Indication: RESPIRATORY PAPILLOMA
     Dosage: UNK
     Route: 065
     Dates: start: 200707, end: 200707
  7. CIDOFOVIR. [Suspect]
     Active Substance: CIDOFOVIR
     Indication: LARYNGEAL PAPILLOMA
     Dosage: UNK ()
     Route: 065
  8. ERLOTINIB [Suspect]
     Active Substance: ERLOTINIB
     Dosage: UNK ()
     Route: 065
  9. ERLOTINIB [Suspect]
     Active Substance: ERLOTINIB
     Dosage: UNK ()
     Route: 065
  10. CELECOXIB. [Suspect]
     Active Substance: CELECOXIB
     Indication: LARYNGEAL PAPILLOMA
     Dosage: 200 MILLIGRAM, DAILY
     Route: 042
  11. CELECOXIB. [Suspect]
     Active Substance: CELECOXIB
     Indication: RESPIRATORY PAPILLOMA
     Dosage: 200 MILLIGRAM, DAILY
     Route: 042

REACTIONS (4)
  - Respiratory papilloma [Recovering/Resolving]
  - Papilloma viral infection [Recovering/Resolving]
  - Off label use [Unknown]
  - Laryngeal papilloma [Recovering/Resolving]

NARRATIVE: CASE EVENT DATE: 200707
